FAERS Safety Report 11788238 (Version 13)
Quarter: 2024Q2

REPORT INFORMATION
  Report Type: Other
  Country: CA (occurrence: CA)
  Receive Date: 20151201
  Receipt Date: 20240429
  Transmission Date: 20240716
  Serious: Yes (Other)
  Sender: FDA-Public Use
  Company Number: CA-ROCHE-1669822

PATIENT
  Age: 45 Year
  Sex: Female

DRUGS (17)
  1. XOLAIR [Suspect]
     Active Substance: OMALIZUMAB
     Indication: Asthma
     Route: 058
     Dates: start: 20141119
  2. XOLAIR [Suspect]
     Active Substance: OMALIZUMAB
     Route: 058
     Dates: start: 20141216
  3. XOLAIR [Suspect]
     Active Substance: OMALIZUMAB
     Route: 058
     Dates: start: 20150317
  4. XOLAIR [Suspect]
     Active Substance: OMALIZUMAB
     Route: 058
     Dates: start: 20150331
  5. XOLAIR [Suspect]
     Active Substance: OMALIZUMAB
     Route: 058
     Dates: start: 20150915
  6. XOLAIR [Suspect]
     Active Substance: OMALIZUMAB
     Route: 058
     Dates: start: 20160329
  7. XOLAIR [Suspect]
     Active Substance: OMALIZUMAB
     Route: 058
     Dates: start: 20160607
  8. XOLAIR [Suspect]
     Active Substance: OMALIZUMAB
     Route: 058
     Dates: start: 20160816
  9. XOLAIR [Suspect]
     Active Substance: OMALIZUMAB
     Route: 058
     Dates: start: 20160831
  10. XOLAIR [Suspect]
     Active Substance: OMALIZUMAB
     Route: 058
     Dates: start: 20161123
  11. XOLAIR [Suspect]
     Active Substance: OMALIZUMAB
     Route: 058
     Dates: start: 20170412
  12. XOLAIR [Suspect]
     Active Substance: OMALIZUMAB
     Route: 058
     Dates: start: 2017
  13. XOLAIR [Suspect]
     Active Substance: OMALIZUMAB
     Route: 058
     Dates: start: 20170607
  14. XOLAIR [Suspect]
     Active Substance: OMALIZUMAB
     Route: 058
     Dates: start: 20170705
  15. XOLAIR [Suspect]
     Active Substance: OMALIZUMAB
     Route: 058
     Dates: start: 20170815
  16. XOLAIR [Suspect]
     Active Substance: OMALIZUMAB
     Route: 058
  17. PANTOPRAZOLE [Concomitant]
     Active Substance: PANTOPRAZOLE
     Indication: Gastrooesophageal reflux disease
     Dosage: UNK, BID

REACTIONS (34)
  - Pneumonia [Unknown]
  - Ear infection [Unknown]
  - Road traffic accident [Unknown]
  - Concussion [Recovered/Resolved]
  - Amnesia [Recovered/Resolved]
  - Chronic obstructive pulmonary disease [Unknown]
  - Crepitations [Unknown]
  - Influenza [Recovered/Resolved]
  - Swelling [Unknown]
  - Nasopharyngitis [Unknown]
  - Upper respiratory tract infection [Unknown]
  - Pruritus [Unknown]
  - Cough [Unknown]
  - Middle insomnia [Recovering/Resolving]
  - Asthma [Recovering/Resolving]
  - Mycotic allergy [Unknown]
  - Allergy to animal [Unknown]
  - Seasonal allergy [Unknown]
  - Mite allergy [Unknown]
  - Allergy to plants [Unknown]
  - Contusion [Recovered/Resolved]
  - Blood pressure diastolic increased [Unknown]
  - Body temperature decreased [Unknown]
  - Respiratory disorder [Unknown]
  - Wheezing [Unknown]
  - Heart rate increased [Not Recovered/Not Resolved]
  - Weight decreased [Unknown]
  - Poor quality sleep [Unknown]
  - Dyspnoea [Recovering/Resolving]
  - Food allergy [Unknown]
  - Milk allergy [Unknown]
  - Sinusitis [Unknown]
  - Weight increased [Unknown]
  - Aphasia [Recovered/Resolved]

NARRATIVE: CASE EVENT DATE: 20141203
